FAERS Safety Report 6926192-8 (Version None)
Quarter: 2010Q3

REPORT INFORMATION
  Report Type: 
  Country: None (occurrence: None)
  Receive Date: 20100816
  Receipt Date: 20100802
  Transmission Date: 20110219
  Serious: Yes (Hospitalization)
  Sender: FDA-Public Use
  Company Number: IT-MYLANLABS-2010S1013847

PATIENT
  Age: 59 Year
  Sex: Male

DRUGS (4)
  1. CYCLOSPORINE [Suspect]
     Dosage: DOSAGE NOT STATED
     Route: 065
  2. TICLOPIDINE HCL [Suspect]
     Dosage: DOSAGE NOT STATED
     Route: 065
  3. MESALAZINE [Concomitant]
     Dosage: DOSAGE NOT STATED
     Route: 065
  4. MYCOPHENOLATE SODIUM [Concomitant]
     Dosage: DOSAGE NOT STATED
     Route: 065

REACTIONS (1)
  - THROMBOTIC MICROANGIOPATHY [None]
